FAERS Safety Report 13818984 (Version 2)
Quarter: 2017Q3

REPORT INFORMATION
  Report Type: Report from Study
  Country: US (occurrence: US)
  Receive Date: 20170801
  Receipt Date: 20170926
  Transmission Date: 20171127
  Serious: Yes (Other)
  Sender: FDA-Public Use
  Company Number: US-JNJFOC-20170725170

PATIENT
  Sex: Male

DRUGS (13)
  1. DILTIAZEM. [Concomitant]
     Active Substance: DILTIAZEM
     Dosage: 300
     Route: 065
  2. SIMVASTATIN. [Concomitant]
     Active Substance: SIMVASTATIN
     Indication: LIPIDS ABNORMAL
     Route: 065
  3. ALOPURINOL [Concomitant]
     Active Substance: ALLOPURINOL
     Indication: GOUT
     Route: 065
  4. INVOKANA [Suspect]
     Active Substance: CANAGLIFLOZIN
     Indication: PRODUCT USED FOR UNKNOWN INDICATION
     Route: 048
  5. INVOKANA [Suspect]
     Active Substance: CANAGLIFLOZIN
     Indication: PRODUCT USED FOR UNKNOWN INDICATION
     Route: 048
     Dates: start: 20170106
  6. HUMALOG [Concomitant]
     Active Substance: INSULIN LISPRO
     Route: 065
  7. LANTUS [Concomitant]
     Active Substance: INSULIN GLARGINE
     Route: 065
  8. HYDROCHLOROTHIAZIDE. [Concomitant]
     Active Substance: HYDROCHLOROTHIAZIDE
     Route: 065
  9. EPLERENONE. [Concomitant]
     Active Substance: EPLERENONE
     Route: 065
  10. ASPIRIN. [Concomitant]
     Active Substance: ASPIRIN
     Route: 065
  11. PANTOPRAZOLE [Concomitant]
     Active Substance: PANTOPRAZOLE
     Route: 065
  12. VALSARTAN. [Concomitant]
     Active Substance: VALSARTAN
     Route: 065
  13. METFORMIN [Concomitant]
     Active Substance: METFORMIN HYDROCHLORIDE
     Dosage: 1000
     Route: 065

REACTIONS (2)
  - Nephrolithiasis [Unknown]
  - Muscle spasms [Recovered/Resolved]
